FAERS Safety Report 24162427 (Version 1)
Quarter: 2024Q3

REPORT INFORMATION
  Report Type: Spontaneous
  Country: US (occurrence: US)
  Receive Date: 20240801
  Receipt Date: 20240801
  Transmission Date: 20241016
  Serious: Yes (Hospitalization, Other)
  Sender: HIKMA
  Company Number: US-HIKMA PHARMACEUTICALS-US-H14001-24-07087

PATIENT
  Age: 36 Year
  Sex: Female
  Weight: 92.4 kg

DRUGS (5)
  1. BRENTUXIMAB VEDOTIN [Suspect]
     Active Substance: BRENTUXIMAB VEDOTIN
     Indication: Hodgkin^s disease
     Dosage: 86 MILLIGRAM, QOD (1.2 MG/KG EVERY 2 WEEKS)
     Route: 042
     Dates: start: 20190118, end: 20190329
  2. DACARBAZINE [Suspect]
     Active Substance: DACARBAZINE
     Indication: Hodgkin^s disease
     Dosage: 800 MILLIGRAM, QOW (375 MG/M2; 28-DAY CYCLE)
     Route: 042
     Dates: start: 20190118, end: 20190329
  3. DOXORUBICIN [Suspect]
     Active Substance: DOXORUBICIN
     Indication: Hodgkin^s disease
     Dosage: 50 MILLIGRAM, QOD (25 MG/M2)
     Route: 042
     Dates: start: 20190118, end: 20190329
  4. NIVOLUMAB [Suspect]
     Active Substance: NIVOLUMAB
     Indication: Hodgkin^s disease
     Dosage: 3 MILLIGRAM/SQ. METER, QOW S FOR 8 CYCLES
     Route: 065
  5. VINBLASTINE [Suspect]
     Active Substance: VINBLASTINE
     Indication: Hodgkin^s disease
     Dosage: 13 MILLIGRAM, QOW (6 MG/M2)
     Route: 042
     Dates: start: 20190118, end: 20190329

REACTIONS (3)
  - Febrile neutropenia [Recovered/Resolved]
  - Dehydration [Recovered/Resolved]
  - Diarrhoea [Recovered/Resolved]

NARRATIVE: CASE EVENT DATE: 20190410
